FAERS Safety Report 7060126-3 (Version None)
Quarter: 2011Q1

REPORT INFORMATION
  Report Type: 
  Country: None (occurrence: None)
  Receive Date: 20101025
  Receipt Date: 20101018
  Transmission Date: 20110831
  Serious: Yes (Life-Threatening, Other)
  Sender: FDA-Public Use
  Company Number: US-JNJFOC-20100801827

PATIENT
  Sex: Male

DRUGS (2)
  1. NUCYNTA [Suspect]
     Indication: ANALGESIC THERAPY
     Route: 048
  2. EMBEDA [Suspect]
     Indication: ANALGESIC THERAPY
     Route: 048

REACTIONS (1)
  - SUICIDE ATTEMPT [None]
